FAERS Safety Report 11152068 (Version 5)
Quarter: 2016Q4

REPORT INFORMATION
  Report Type: Report from Study
  Country: JP (occurrence: JP)
  Receive Date: 20150601
  Receipt Date: 20161003
  Transmission Date: 20170206
  Serious: Yes (Hospitalization)
  Sender: FDA-Public Use
  Company Number: JP-ACTELION-A-CH2015-118429

PATIENT
  Age: 10 Year
  Sex: Male

DRUGS (8)
  1. EPOPROSTENOL ACT [Suspect]
     Active Substance: EPOPROSTENOL
     Dosage: 5 NG/KG, PER MIN
     Route: 042
     Dates: start: 20130827, end: 20130926
  2. TRACLEER [Suspect]
     Active Substance: BOSENTAN
     Indication: PORTOPULMONARY HYPERTENSION
     Dosage: 62.5 MG, BID
     Route: 048
     Dates: start: 20130108
  3. SILDENAFIL CITRATE. [Concomitant]
     Active Substance: SILDENAFIL CITRATE
  4. ADCIRCA [Suspect]
     Active Substance: TADALAFIL
     Indication: PULMONARY HYPERTENSION
     Dosage: 20 MG, BID
     Route: 048
     Dates: start: 20140508
  5. EPOPROSTENOL ACT [Suspect]
     Active Substance: EPOPROSTENOL
     Dosage: 15 NG/KG, PER MIN
     Route: 042
     Dates: start: 20130927, end: 20131026
  6. EPOPROSTENOL ACT [Suspect]
     Active Substance: EPOPROSTENOL
     Indication: PORTOPULMONARY HYPERTENSION
     Dosage: 18 NG/KG, PER MIN
     Route: 042
     Dates: start: 20131027
  7. EPOPROSTENOL ACT [Suspect]
     Active Substance: EPOPROSTENOL
     Dosage: 26 NG/KG, PER MIN
     Route: 042
     Dates: start: 20140627
  8. WARFARIN POTASSIUM [Concomitant]
     Active Substance: WARFARIN POTASSIUM

REACTIONS (5)
  - Condition aggravated [Recovering/Resolving]
  - Catheter removal [Recovered/Resolved]
  - Dermatitis atopic [Recovering/Resolving]
  - Headache [Not Recovered/Not Resolved]
  - Device related infection [Recovered/Resolved]

NARRATIVE: CASE EVENT DATE: 20140527
